FAERS Safety Report 9402857 (Version 1)
Quarter: 2013Q3

REPORT INFORMATION
  Report Type: Spontaneous
  Country: US (occurrence: None)
  Receive Date: 20130715
  Receipt Date: 20130715
  Transmission Date: 20140515
  Serious: Yes (Hospitalization)
  Sender: FDA-Public Use
  Company Number: None

PATIENT
  Age: 47 Year
  Sex: Female
  Weight: 81.4 kg

DRUGS (1)
  1. OMNIPAQUE 300 [Suspect]
     Route: 042
     Dates: end: 20130703

REACTIONS (6)
  - Contrast media reaction [None]
  - Vomiting [None]
  - Urticaria [None]
  - Dyspnoea [None]
  - Swollen tongue [None]
  - Pharyngeal oedema [None]
